FAERS Safety Report 5815283-0 (Version None)
Quarter: 2008Q3

REPORT INFORMATION
  Report Type: 
  Country: None (occurrence: None)
  Receive Date: 20080718
  Receipt Date: 20080708
  Transmission Date: 20090109
  Serious: Yes (Other)
  Sender: FDA-Public Use
  Company Number: US-PFIZER INC-2008059038

PATIENT
  Age: 67 Year
  Sex: Female

DRUGS (4)
  1. SELZENTRY [Suspect]
     Indication: HIV INFECTION
  2. RALTEGRAVIR [Suspect]
     Indication: HIV INFECTION
     Dates: start: 20071101
  3. ETRAVIRINE [Suspect]
     Indication: HIV INFECTION
  4. 3TC [Suspect]
     Indication: HIV INFECTION

REACTIONS (1)
  - MYELODYSPLASTIC SYNDROME [None]
